FAERS Safety Report 9425184 (Version 1)
Quarter: 2013Q3

REPORT INFORMATION
  Report Type: Spontaneous
  Country: DE (occurrence: DE)
  Receive Date: 20130725
  Receipt Date: 20130725
  Transmission Date: 20140515
  Serious: Yes (Hospitalization)
  Sender: FDA-Public Use
  Company Number: AUR-APL-2013-05947

PATIENT
  Age: 59 Year
  Sex: Male
  Weight: 81 kg

DRUGS (4)
  1. LEVETIRACETAM (LEVETIRACETAM) [Suspect]
     Indication: EPILEPSY
     Dates: start: 20130413, end: 20130502
  2. ATACAND [Suspect]
     Indication: HYPERTENSION
  3. NEBIVOLOL (NEBIVOLOL) [Concomitant]
  4. LERCANIDIPIN (LERCANIDIPINE) [Concomitant]

REACTIONS (1)
  - Hyponatraemia [None]
